FAERS Safety Report 8990730 (Version 1)
Quarter: 2012Q4

REPORT INFORMATION
  Report Type: 
  Country: US (occurrence: US)
  Receive Date: 20121228
  Receipt Date: 20121228
  Transmission Date: 20130627
  Serious: No
  Sender: FDA-Public Use
  Company Number: US-PFIZER INC-2012331275

PATIENT
  Age: 48 Year
  Sex: Female
  Weight: 54.42 kg

DRUGS (3)
  1. CHANTIX [Suspect]
     Indication: SMOKING CESSATION THERAPY
     Dosage: two tablets of 1mg together in morning
     Route: 048
     Dates: start: 20121226
  2. ALBUTEROL [Concomitant]
     Indication: CHRONIC OBSTRUCTIVE PULMONARY DISEASE
     Dosage: UNK
  3. INSULIN [Concomitant]
     Indication: DIABETES
     Dosage: UNK

REACTIONS (3)
  - Intentional drug misuse [Unknown]
  - Nausea [Unknown]
  - Vomiting [Unknown]
